FAERS Safety Report 7330084-2 (Version None)
Quarter: 2011Q1

REPORT INFORMATION
  Report Type: 
  Country: None (occurrence: None)
  Receive Date: 20110303
  Receipt Date: 20110221
  Transmission Date: 20110831
  Serious: Yes (Other)
  Sender: FDA-Public Use
  Company Number: FR-GENENTECH-313778

PATIENT
  Sex: Female
  Weight: 73 kg

DRUGS (5)
  1. KARDEGIC [Concomitant]
     Indication: PRODUCT USED FOR UNKNOWN INDICATION
     Dosage: 160 MG, QD
     Route: 048
  2. ACETAMINOPHEN [Concomitant]
     Indication: PAIN
     Route: 048
  3. ATACAND [Concomitant]
     Indication: HYPERTENSION
     Dosage: 4 MG, QD
     Route: 048
  4. PREVISCAN (FRANCE) [Concomitant]
     Indication: PROPHYLAXIS
     Route: 048
  5. MABTHERA [Suspect]
     Indication: RHEUMATOID ARTHRITIS
     Dosage: 1000 MG, UNK
     Route: 042
     Dates: start: 20101222, end: 20101222

REACTIONS (1)
  - VENOUS THROMBOSIS LIMB [None]
